FAERS Safety Report 5413583-X (Version None)
Quarter: 2007Q3

REPORT INFORMATION
  Report Type: 
  Country: None (occurrence: None)
  Receive Date: 20070810
  Receipt Date: 20070727
  Transmission Date: 20080115
  Serious: Yes (Other)
  Sender: FDA-Public Use
  Company Number: 2007AD000072

PATIENT
  Age: 31 Year
  Sex: Female
  Weight: 49.8957 kg

DRUGS (1)
  1. KEFLEX [Suspect]
     Indication: MASTITIS
     Dosage: 500 MG;QD;PO
     Route: 048
     Dates: start: 20070627, end: 20070701

REACTIONS (8)
  - DIZZINESS [None]
  - FEELING ABNORMAL [None]
  - MIDDLE EAR DISORDER [None]
  - OTOTOXICITY [None]
  - REFUSAL OF TREATMENT BY PATIENT [None]
  - VERTIGO [None]
  - VESTIBULAR DISORDER [None]
  - VISUAL DISTURBANCE [None]
